FAERS Safety Report 10266715 (Version 1)
Quarter: 2014Q2

REPORT INFORMATION
  Report Type: Spontaneous
  Country: FR (occurrence: FR)
  Receive Date: 20140630
  Receipt Date: 20140630
  Transmission Date: 20141212
  Serious: Yes (Hospitalization)
  Sender: FDA-Public Use
  Company Number: FR-ROCHE-1425458

PATIENT
  Age: 50 Year
  Sex: Female

DRUGS (3)
  1. RIVOTRIL [Suspect]
     Indication: EPILEPSY
     Route: 048
  2. ZONEGRAN [Suspect]
     Indication: EPILEPSY
     Route: 048
     Dates: start: 201405
  3. TEGRETOL [Suspect]
     Indication: EPILEPSY
     Route: 048

REACTIONS (3)
  - Decreased appetite [Not Recovered/Not Resolved]
  - Tremor [Not Recovered/Not Resolved]
  - Asthenia [Not Recovered/Not Resolved]
